FAERS Safety Report 5220872-0 (Version None)
Quarter: 2007Q1

REPORT INFORMATION
  Report Type: 
  Country: None (occurrence: None)
  Receive Date: 20070126
  Receipt Date: 20070124
  Transmission Date: 20070707
  Serious: Yes (Other)
  Sender: FDA-Public Use
  Company Number: US-GLAXOSMITHKLINE-A0635930A

PATIENT
  Age: 64 Year
  Sex: Male

DRUGS (4)
  1. OSCAL 500 + D [Suspect]
     Indication: MINERAL SUPPLEMENTATION
     Dosage: 2TAB PER DAY
     Route: 048
     Dates: start: 20050101, end: 20070101
  2. CARDIAC MEDICATION [Concomitant]
  3. ANTICOAGULANT [Concomitant]
  4. ANTIHYPERTENSIVE [Concomitant]

REACTIONS (3)
  - BODY HEIGHT DECREASED [None]
  - MYOCARDIAL INFARCTION [None]
  - PROSTATE CANCER [None]
